FAERS Safety Report 23785735 (Version 1)
Quarter: 2024Q2

REPORT INFORMATION
  Report Type: Spontaneous
  Country: CN (occurrence: CN)
  Receive Date: 20240425
  Receipt Date: 20240425
  Transmission Date: 20240715
  Serious: Yes (Hospitalization)
  Sender: FDA-Public Use
  Company Number: CN-BEIGENE-BGN-2024-006012

PATIENT

DRUGS (4)
  1. TISLELIZUMAB [Suspect]
     Active Substance: TISLELIZUMAB
     Indication: Pancreatic carcinoma
     Dosage: 200 MILLIGRAM
     Route: 041
     Dates: start: 20240319
  2. LOBAPLATIN [Suspect]
     Active Substance: LOBAPLATIN
     Indication: Pancreatic carcinoma
     Dosage: 50 MILLIGRAM
     Route: 033
     Dates: start: 20240312
  3. GEMCITABINE HYDROCHLORIDE [Suspect]
     Active Substance: GEMCITABINE HYDROCHLORIDE
     Indication: Pancreatic carcinoma
     Dosage: 400 MILLIGRAM
     Route: 033
     Dates: start: 20240312
  4. ENDOSTATIN [Suspect]
     Active Substance: ENDOSTATIN
     Indication: Pancreatic carcinoma
     Dosage: 30 MILLIGRAM
     Route: 033
     Dates: start: 20240317

REACTIONS (1)
  - Myelosuppression [Recovering/Resolving]

NARRATIVE: CASE EVENT DATE: 20240402
